FAERS Safety Report 18161828 (Version 4)
Quarter: 2021Q1

REPORT INFORMATION
  Report Type: Other
  Country: CA (occurrence: CA)
  Receive Date: 20200817
  Receipt Date: 20210319
  Transmission Date: 20210419
  Serious: Yes (Other)
  Sender: FDA-Public Use
  Company Number: CA-APOTEX-2020AP015789

PATIENT
  Age: 57 Year
  Sex: Female

DRUGS (6)
  1. FORMOTEROL FUMARATE [Suspect]
     Active Substance: FORMOTEROL FUMARATE
     Indication: ASTHMA
     Dosage: UNK
     Route: 065
  2. ATOCK [Suspect]
     Active Substance: FORMOTEROL FUMARATE
     Indication: ASTHMA
     Dosage: UNK
     Route: 065
  3. NUCALA [Concomitant]
     Active Substance: MEPOLIZUMAB
     Indication: ASTHMA
     Dosage: 100 MILLIGRAM, QD
     Route: 058
  4. SALBUTAMOL [Suspect]
     Active Substance: ALBUTEROL
     Indication: ASTHMA
     Dosage: 100 MICROGRAM, QD
     Route: 065
  5. ALVESCO [Suspect]
     Active Substance: CICLESONIDE
     Indication: ASTHMA
     Dosage: UNK, QD
     Route: 065
  6. SPIRIVA [Suspect]
     Active Substance: TIOTROPIUM BROMIDE MONOHYDRATE
     Indication: ASTHMA
     Dosage: UNK, QD
     Route: 065

REACTIONS (5)
  - Therapeutic product effect incomplete [Recovered/Resolved]
  - Pulmonary fibrosis [Recovered/Resolved]
  - Asthma [Recovered/Resolved]
  - Joint swelling [Recovered/Resolved]
  - Productive cough [Recovered/Resolved]
